FAERS Safety Report 8361608-4 (Version None)
Quarter: 2012Q2

REPORT INFORMATION
  Report Type: 
  Country: None (occurrence: None)
  Receive Date: 20120515
  Receipt Date: 20120511
  Transmission Date: 20120825
  Serious: No
  Sender: FDA-Public Use
  Company Number: US-BAYER-2012-046996

PATIENT
  Age: 63 Year
  Sex: Male
  Weight: 86 kg

DRUGS (1)
  1. NAPROXEN SODIUM [Suspect]
     Dosage: 1 U, BID
     Route: 048
     Dates: start: 20120413

REACTIONS (1)
  - HYPERHIDROSIS [None]
